FAERS Safety Report 9231807 (Version 1)
Quarter: 2013Q2

REPORT INFORMATION
  Report Type: Spontaneous
  Country: US (occurrence: US)
  Receive Date: 20130415
  Receipt Date: 20130415
  Transmission Date: 20140414
  Serious: No
  Sender: FDA-Public Use
  Company Number: US-B.I. PHARMACEUTICALS,INC./RIDGEFIELD-2013-BI-08910BP

PATIENT
  Sex: Female

DRUGS (9)
  1. MICARDIS [Suspect]
     Indication: HYPERTENSION
     Dosage: 20 MG
     Route: 048
  2. SPIRIVA [Suspect]
     Indication: CHRONIC OBSTRUCTIVE PULMONARY DISEASE
     Dosage: 18 MCG
     Route: 055
  3. ALBUTEROL INHALER [Concomitant]
     Route: 055
  4. ASPIRIN [Concomitant]
     Dosage: 81 MG
     Route: 048
  5. VITAMIN D [Concomitant]
     Route: 048
  6. TOPROL XL [Concomitant]
     Dosage: 150 MG
     Route: 048
  7. ALBUTEROL NEBULIZER [Concomitant]
     Route: 055
  8. SYNTHROID [Concomitant]
     Indication: THYROID DISORDER
     Dosage: 150 MCG
     Route: 048
  9. LIDODERM PATCH [Concomitant]
     Indication: SCIATICA
     Route: 061

REACTIONS (1)
  - Cataract [Not Recovered/Not Resolved]
